FAERS Safety Report 6571204-7 (Version None)
Quarter: 2010Q1

REPORT INFORMATION
  Report Type: 
  Country: None (occurrence: None)
  Receive Date: 20100129
  Receipt Date: 20100127
  Transmission Date: 20100710
  Serious: Yes (Hospitalization)
  Sender: FDA-Public Use
  Company Number: ALL1-2010-00336

PATIENT
  Age: 49 Year
  Sex: Male
  Weight: 78.5 kg

DRUGS (1)
  1. FOSRENOL [Suspect]
     Indication: HYPERPHOSPHATAEMIA
     Dosage: 1 G, (WITH EACH MEAL) OTHER, ORAL
     Route: 048
     Dates: start: 20090101

REACTIONS (1)
  - BLOOD COUNT ABNORMAL [None]
